FAERS Safety Report 8538642-4 (Version None)
Quarter: 2012Q3

REPORT INFORMATION
  Report Type: 
  Country: None (occurrence: None)
  Receive Date: 20120713
  Receipt Date: 20120628
  Transmission Date: 20120928
  Serious: Yes (Hospitalization)
  Sender: FDA-Public Use
  Company Number: 2012000101

PATIENT
  Age: 49 Year
  Sex: Male

DRUGS (7)
  1. ACEON [Suspect]
     Indication: HYPERTENSION
     Dosage: 10 MG, QD, ORAL
     Route: 048
     Dates: start: 20120101
  2. OCTAGAM (IMMUNOGLOBIN HUMAN NORMAL) [Suspect]
     Indication: INCLUSION BODY MYOSITIS
     Dosage: 2000 MG/KG, INTRAVENOUS; 2000 MG/KG, INTRAVENOUS; 2000 MG/KG, INTRAVENOUS
     Route: 042
     Dates: start: 20120315, end: 20120316
  3. OCTAGAM (IMMUNOGLOBIN HUMAN NORMAL) [Suspect]
     Indication: INCLUSION BODY MYOSITIS
     Dosage: 2000 MG/KG, INTRAVENOUS; 2000 MG/KG, INTRAVENOUS; 2000 MG/KG, INTRAVENOUS
     Route: 042
     Dates: start: 20120412, end: 20120413
  4. OCTAGAM (IMMUNOGLOBIN HUMAN NORMAL) [Suspect]
     Indication: INCLUSION BODY MYOSITIS
     Dosage: 2000 MG/KG, INTRAVENOUS; 2000 MG/KG, INTRAVENOUS; 2000 MG/KG, INTRAVENOUS
     Route: 042
     Dates: start: 20120216, end: 20120217
  5. OCTAGAM (IMMUNOGLOBIN HUMAN NORMAL) [Suspect]
  6. IMMUNE GLOBULIN (HUMAN) [Concomitant]
  7. METFORMIN HYDROCHLORIDE [Suspect]
     Indication: TYPE 2 DIABETES MELLITUS
     Dosage: 500 MG, QD, ORAL
     Route: 048
     Dates: start: 20120101

REACTIONS (1)
  - DYSHIDROSIS [None]
